FAERS Safety Report 21364438 (Version 1)
Quarter: 2022Q3

REPORT INFORMATION
  Report Type: Spontaneous
  Country: FR (occurrence: FR)
  Receive Date: 20220922
  Receipt Date: 20220922
  Transmission Date: 20221027
  Serious: Yes (Hospitalization, Other)
  Sender: FDA-Public Use
  Company Number: None

PATIENT
  Age: 91 Year
  Sex: Male

DRUGS (19)
  1. LINEZOLID [Suspect]
     Active Substance: LINEZOLID
     Indication: Renal abscess
     Dosage: 600 MG, 1X/DAY
     Route: 048
     Dates: start: 20220817, end: 20220826
  2. LINEZOLID [Suspect]
     Active Substance: LINEZOLID
     Dosage: 600 MG, 1X/DAY
     Route: 048
     Dates: start: 20220829, end: 20220905
  3. PIPERACILLIN SODIUM\TAZOBACTAM SODIUM [Suspect]
     Active Substance: PIPERACILLIN SODIUM\TAZOBACTAM SODIUM
     Indication: Renal abscess
     Dosage: 4 G, 3X/DAY (FREQ:8 H)
     Route: 042
     Dates: start: 20220814, end: 20220818
  4. PIPERACILLIN SODIUM\TAZOBACTAM SODIUM [Suspect]
     Active Substance: PIPERACILLIN SODIUM\TAZOBACTAM SODIUM
     Dosage: 4 G, 3X/DAY (FREQ:8 H)
     Route: 042
     Dates: start: 20220828, end: 20220904
  5. CEFTRIAXONE [Concomitant]
     Active Substance: CEFTRIAXONE
     Indication: Renal abscess
     Dosage: 1 G, 1X/DAY (CEFTRIAXONE MYLAN)
     Route: 042
     Dates: start: 20220818, end: 20220829
  6. CALCIPARINE [Concomitant]
     Active Substance: HEPARIN CALCIUM
     Indication: Thrombosis prophylaxis
     Dosage: 5000 IU, 1X/DAY
     Route: 058
     Dates: start: 20220815, end: 20220819
  7. GLYCOPYRRONIUM\INDACATEROL [Concomitant]
     Active Substance: GLYCOPYRRONIUM\INDACATEROL
     Dosage: 1 DF, 1X/DAY (1-0-0)
  8. OMEPRAZOLE [Concomitant]
     Active Substance: OMEPRAZOLE
     Dosage: 20 MG, 1X/DAY (1-0-0)
  9. LERCANIDIPINE [Concomitant]
     Active Substance: LERCANIDIPINE
     Dosage: 10 MG, 1X/DAY (0-0-1)
  10. WARFARIN [Concomitant]
     Active Substance: WARFARIN
     Dosage: 2 MG OR 3 MG ALTERNATING
  11. AMIODARONE [Concomitant]
     Active Substance: AMIODARONE
     Dosage: 200 MG BY INTAKE, 5 DAYS/7
  12. SIMVASTATIN [Concomitant]
     Active Substance: SIMVASTATIN
     Dosage: 40 MG, 1X/DAY (0-0-1)
  13. POLYETHYLENE GLYCOLS [Concomitant]
     Active Substance: POLYETHYLENE GLYCOLS
     Dosage: 10 G, 1X/DAY IN THE MORNING
  14. SILODOSIN [Concomitant]
     Active Substance: SILODOSIN
     Dosage: 4 MG, 1X/DAY (1-0-0)
  15. ACETAMINOPHEN [Concomitant]
     Active Substance: ACETAMINOPHEN
     Dosage: UNK
  16. LORATADINE [Concomitant]
     Active Substance: LORATADINE
     Dosage: 10 MG, 1X/DAY(0-0-1)
  17. CROMOLYN SODIUM [Concomitant]
     Active Substance: CROMOLYN SODIUM
     Dosage: 1 DF, 2X/DAY (1-0-1)
  18. LEVOTHYROXINE [Concomitant]
     Active Substance: LEVOTHYROXINE
     Dosage: 50 UG, 1X/DAY (1-0-0)
  19. LEVOTHYROXINE [Concomitant]
     Active Substance: LEVOTHYROXINE
     Dosage: 1.5 DF, DAILY (0.5-1-0-0)

REACTIONS (3)
  - Acute kidney injury [Not Recovered/Not Resolved]
  - Off label use [Unknown]
  - Off label use [Unknown]

NARRATIVE: CASE EVENT DATE: 20220816
